FAERS Safety Report 9579938 (Version 1)
Quarter: 2013Q3

REPORT INFORMATION
  Report Type: Spontaneous
  Country: US (occurrence: None)
  Receive Date: 20130916
  Receipt Date: 20130916
  Transmission Date: 20140515
  Serious: Yes (Other)
  Sender: FDA-Public Use
  Company Number: JPI-P-025702

PATIENT
  Age: 72 Year
  Sex: Female
  Weight: 58.97 kg

DRUGS (7)
  1. XYREM (500 MILLIGRAM/MILLILITERS, SOLUTION) (SODIUM OXYBATE) [Suspect]
     Indication: SLEEP DISORDER
     Route: 048
     Dates: start: 20081112
  2. DULOXETINE HYDROCHLORIDE [Concomitant]
  3. ACETAMINOPHEN HYDROCHLORIDE BITARTRATE [Concomitant]
  4. LEVOTHYROXINE SODIUIM [Concomitant]
  5. OMEGA 3 ACID ETHYL ESTERS [Concomitant]
  6. BIOTIN [Concomitant]
  7. VITAMIN D [Concomitant]

REACTIONS (3)
  - Hypertension [None]
  - Weight increased [None]
  - Fluid retention [None]
